FAERS Safety Report 25062580 (Version 1)
Quarter: 2025Q1

REPORT INFORMATION
  Report Type: Spontaneous
  Country: US (occurrence: US)
  Receive Date: 20250311
  Receipt Date: 20250311
  Transmission Date: 20250408
  Serious: No
  Sender: BIOGEN
  Company Number: US-BIOGEN-2025BI01303114

PATIENT
  Age: 24 Year
  Sex: Female

DRUGS (1)
  1. ZURZUVAE [Suspect]
     Active Substance: ZURANOLONE
     Indication: Perinatal depression
     Dosage: 25MG 2 UNITS
     Route: 050
     Dates: start: 20250225

REACTIONS (2)
  - Somnolence [Not Recovered/Not Resolved]
  - Perinatal depression [Not Recovered/Not Resolved]

NARRATIVE: CASE EVENT DATE: 20250227
